FAERS Safety Report 17610704 (Version 1)
Quarter: 2020Q2

REPORT INFORMATION
  Report Type: Spontaneous
  Country: GB (occurrence: GB)
  Receive Date: 20200401
  Receipt Date: 20200401
  Transmission Date: 20200713
  Serious: Yes (Death, Hospitalization, Disabling, Other)
  Sender: FDA-Public Use
  Company Number: GB-ABBVIE-20K-167-3346675-00

PATIENT
  Age: 79 Year
  Sex: Female
  Weight: 50.8 kg

DRUGS (1)
  1. HUMIRA [Suspect]
     Active Substance: ADALIMUMAB
     Indication: RHEUMATOID ARTHRITIS
     Route: 058
     Dates: start: 20100901, end: 20180505

REACTIONS (2)
  - Multiple fractures [Fatal]
  - Pneumonia [Not Recovered/Not Resolved]
